FAERS Safety Report 4867085-X (Version None)
Quarter: 2005Q4

REPORT INFORMATION
  Report Type: 
  Country: None (occurrence: None)
  Receive Date: 20051222
  Receipt Date: 20051219
  Transmission Date: 20060501
  Serious: Yes (Hospitalization)
  Sender: FDA-Public Use
  Company Number: 2005-04878

PATIENT
  Age: 37 Year
  Sex: Male

DRUGS (2)
  1. BACLOFEN [Suspect]
     Indication: MUSCLE SPASTICITY
     Dosage: 180 MCG/DAY CONTINUOUS INFUSION, INTRATHECAL
     Route: 037
     Dates: start: 20010101, end: 20050101
  2. RIFAMPICIN [Concomitant]

REACTIONS (2)
  - DRUG WITHDRAWAL SYNDROME [None]
  - RHABDOMYOLYSIS [None]
